FAERS Safety Report 5265018-8 (Version None)
Quarter: 2007Q1

REPORT INFORMATION
  Report Type: 
  Country: None (occurrence: None)
  Receive Date: 20070314
  Receipt Date: 20070307
  Transmission Date: 20070707
  Serious: Yes (Death, Hospitalization)
  Sender: FDA-Public Use
  Company Number: US-AMGEN-US214130

PATIENT
  Sex: Female

DRUGS (9)
  1. EPOGEN [Suspect]
     Indication: DIALYSIS
     Route: 065
     Dates: start: 20060310, end: 20061201
  2. LANTUS [Concomitant]
  3. AVANDIA [Concomitant]
  4. COUMADIN [Concomitant]
  5. DIOVAN [Concomitant]
  6. PROTONIX [Concomitant]
  7. TUMS [Concomitant]
  8. ZESTRIL [Concomitant]
  9. ADALAT [Concomitant]

REACTIONS (2)
  - FALL [None]
  - SUBDURAL HAEMORRHAGE [None]
